FAERS Safety Report 11256627 (Version 1)
Quarter: 2015Q3

REPORT INFORMATION
  Report Type: Spontaneous
  Country: US (occurrence: US)
  Receive Date: 20150709
  Receipt Date: 20150709
  Transmission Date: 20151125
  Serious: No
  Sender: FDA-Public Use
  Company Number: US-PURDUE-USA-2014-0115325

PATIENT
  Age: 21 Year
  Sex: Female

DRUGS (2)
  1. BUTRANS [Suspect]
     Active Substance: BUPRENORPHINE
     Dosage: 5 MCG/HR, WEEKLY
     Dates: start: 201403, end: 2014
  2. BUTRANS [Suspect]
     Active Substance: BUPRENORPHINE
     Indication: HEADACHE
     Dosage: 10 MCG/HR, WEEKLY
     Route: 062
     Dates: start: 20140627, end: 20140630

REACTIONS (4)
  - Dysphagia [Unknown]
  - Breakthrough pain [Unknown]
  - Application site pain [Unknown]
  - Throat tightness [Not Recovered/Not Resolved]

NARRATIVE: CASE EVENT DATE: 201403
